FAERS Safety Report 5366976-3 (Version None)
Quarter: 2007Q2

REPORT INFORMATION
  Report Type: 
  Country: None (occurrence: None)
  Receive Date: 20070622
  Receipt Date: 20070424
  Transmission Date: 20071010
  Serious: Yes (Other)
  Sender: FDA-Public Use
  Company Number: US-PURDUE-USA_2007_0027699

PATIENT
  Sex: Female
  Weight: 122 kg

DRUGS (6)
  1. OXYCONTIN [Suspect]
     Indication: PAIN
     Dosage: 80 MG, Q12H
     Route: 055
     Dates: start: 19980101, end: 20060601
  2. LISINOPRIL [Concomitant]
     Dosage: 25 MG, DAILY
  3. GLUCOPHAG [Concomitant]
     Dosage: 500 MG, DAILY
  4. TEMAZEPAM [Concomitant]
     Dosage: 15 MG, DAILY
  5. LANTUS [Concomitant]
     Dosage: 10 UNIT, PRN
  6. LORTAB [Concomitant]
     Dosage: 10 MG, Q6H

REACTIONS (14)
  - ANHEDONIA [None]
  - BALANCE DISORDER [None]
  - CONFUSIONAL STATE [None]
  - DRUG ABUSER [None]
  - DRUG DEPENDENCE [None]
  - DRUG WITHDRAWAL SYNDROME [None]
  - FALL [None]
  - GAIT DISTURBANCE [None]
  - GENERAL PHYSICAL HEALTH DETERIORATION [None]
  - INADEQUATE ANALGESIA [None]
  - MENTAL DISORDER [None]
  - TOE AMPUTATION [None]
  - VISUAL DISTURBANCE [None]
  - WOUND DEBRIDEMENT [None]
